FAERS Safety Report 20414617 (Version 4)
Quarter: 2022Q1

REPORT INFORMATION
  Report Type: Spontaneous
  Country: US (occurrence: US)
  Receive Date: 20220202
  Receipt Date: 20220317
  Transmission Date: 20220423
  Serious: Yes (Other)
  Sender: FDA-Public Use
  Company Number: US-UROGEN PHARMA LTD.-2022-UGN-000005

PATIENT

DRUGS (6)
  1. JELMYTO [Suspect]
     Active Substance: MITOMYCIN
     Indication: Transitional cell cancer of the renal pelvis and ureter
     Dosage: 1 TIMES PER WEEK (INSTILLATION)
     Dates: start: 20210616, end: 20210616
  2. JELMYTO [Suspect]
     Active Substance: MITOMYCIN
     Dosage: 1 TIMES PER WEEK (INSTILLATION)
     Dates: start: 20220112, end: 20220112
  3. JELMYTO [Suspect]
     Active Substance: MITOMYCIN
     Dosage: 1 TIMES PER WEEK (INSTILLATION)
     Dates: start: 20220119, end: 20220119
  4. JELMYTO [Suspect]
     Active Substance: MITOMYCIN
     Dosage: 1 TIMES PER WEEK (INSTILLATION)
     Dates: start: 20220125, end: 20220125
  5. JELMYTO [Suspect]
     Active Substance: MITOMYCIN
     Dosage: 1 TIMES PER WEEK (INSTILLATION)
     Dates: start: 20220203, end: 20220203
  6. JELMYTO [Suspect]
     Active Substance: MITOMYCIN
     Dosage: 1 TIMES PER WEEK (INSTILLATION)
     Dates: start: 20220208, end: 20220208

REACTIONS (1)
  - Urinary retention [Recovered/Resolved]

NARRATIVE: CASE EVENT DATE: 20220113
